FAERS Safety Report 7377943-2 (Version None)
Quarter: 2011Q1

REPORT INFORMATION
  Report Type: 
  Country: None (occurrence: None)
  Receive Date: 20110328
  Receipt Date: 20110316
  Transmission Date: 20110831
  Serious: Yes (Other)
  Sender: FDA-Public Use
  Company Number: AU-PFIZER INC-2011057280

PATIENT
  Age: 64 Year
  Sex: Female

DRUGS (2)
  1. PRISTIQ [Suspect]
     Indication: DEPRESSION
     Dosage: 50 MG, 1X/DAY
     Dates: start: 20090101
  2. NEXIUM [Concomitant]

REACTIONS (10)
  - NAUSEA [None]
  - GLAUCOMA [None]
  - FALL [None]
  - BLOOD CHOLESTEROL INCREASED [None]
  - TINNITUS [None]
  - LOSS OF CONSCIOUSNESS [None]
  - HEADACHE [None]
  - DRUG WITHDRAWAL SYNDROME [None]
  - DIZZINESS [None]
  - DIARRHOEA [None]
